FAERS Safety Report 8252361-3 (Version None)
Quarter: 2012Q2

REPORT INFORMATION
  Report Type: 
  Country: None (occurrence: None)
  Receive Date: 20120402
  Receipt Date: 20110504
  Transmission Date: 20120825
  Serious: No
  Sender: FDA-Public Use
  Company Number: US-ABBOTT-11P-163-0804537-00

PATIENT
  Age: 35 Year
  Sex: Male
  Weight: 140.91 kg

DRUGS (2)
  1. TESTOSTERONE [Suspect]
     Indication: BLOOD TESTOSTERONE DECREASED
     Dosage: DAILY DOSE: 5 GRAM(S)
     Route: 062
     Dates: start: 20110301
  2. SALBUTAMOL [Concomitant]
     Indication: ASTHMA
     Dosage: DAILY DOSE:  UNKNOWN
     Route: 065

REACTIONS (7)
  - FEELING ABNORMAL [None]
  - LIBIDO DECREASED [None]
  - ANXIETY [None]
  - AGITATION [None]
  - BLOOD TESTOSTERONE DECREASED [None]
  - ERECTILE DYSFUNCTION [None]
  - AGGRESSION [None]
